FAERS Safety Report 16279569 (Version 1)
Quarter: 2019Q2

REPORT INFORMATION
  Report Type: Spontaneous
  Country: JP (occurrence: JP)
  Receive Date: 20190507
  Receipt Date: 20190507
  Transmission Date: 20190711
  Serious: Yes (Other)
  Sender: FDA-Public Use
  Company Number: JP-LUPIN PHARMACEUTICALS INC.-2019-02767

PATIENT
  Age: 75 Year
  Sex: Female

DRUGS (1)
  1. HYDROCORTISONE. [Suspect]
     Active Substance: HYDROCORTISONE
     Indication: SECONDARY ADRENOCORTICAL INSUFFICIENCY
     Dosage: 25 MILLIGRAM, QD
     Route: 065

REACTIONS (6)
  - Blood potassium decreased [Unknown]
  - Condition aggravated [Unknown]
  - Intentional product use issue [Unknown]
  - Face oedema [Unknown]
  - Hypercorticoidism [Recovered/Resolved]
  - Oedema peripheral [Unknown]
